APPROVED DRUG PRODUCT: DOXYCYCLINE HYCLATE
Active Ingredient: DOXYCYCLINE HYCLATE
Strength: EQ 20MG BASE
Dosage Form/Route: CAPSULE;ORAL
Application: A065103 | Product #001
Applicant: HIKMA INTERNATIONAL PHARMACEUTICALS LLC
Approved: May 13, 2005 | RLD: No | RS: No | Type: DISCN